FAERS Safety Report 13769644 (Version 1)
Quarter: 2017Q3

REPORT INFORMATION
  Report Type: Spontaneous
  Country: GB (occurrence: GB)
  Receive Date: 20170719
  Receipt Date: 20170719
  Transmission Date: 20171127
  Serious: Yes (Other)
  Sender: FDA-Public Use
  Company Number: GB-AKRIMAX-TIR-2017-0666

PATIENT
  Age: 15 Year
  Sex: Female

DRUGS (1)
  1. LEVOTHYROXINE. [Suspect]
     Active Substance: LEVOTHYROXINE
     Indication: PRIMARY HYPOTHYROIDISM
     Dosage: UNKNOWN
     Route: 065

REACTIONS (2)
  - Hyperthyroidism [Recovered/Resolved]
  - Coeliac disease [Unknown]
